FAERS Safety Report 4299157-5 (Version None)
Quarter: 2004Q1

REPORT INFORMATION
  Report Type: 
  Country: None (occurrence: None)
  Receive Date: 20040217
  Receipt Date: 20030319
  Transmission Date: 20041129
  Serious: Yes (Life-Threatening, Hospitalization)
  Sender: FDA-Public Use
  Company Number: US029841

PATIENT
  Age: 53 Year
  Sex: Male

DRUGS (3)
  1. ETANERCEPT [Suspect]
     Indication: PSORIASIS
     Dosage: TWICE WEEKLY, SC
     Route: 058
     Dates: start: 20020220, end: 20030208
  2. DICLOFENAC SODIUM [Concomitant]
  3. ASPIRIN [Concomitant]

REACTIONS (4)
  - CARDIAC ARREST [None]
  - CORONARY ARTERY DISEASE [None]
  - MYOCARDIAL INFARCTION [None]
  - QUADRUPLE VESSEL BYPASS GRAFT [None]
